FAERS Safety Report 5865900-4 (Version None)
Quarter: 2008Q3

REPORT INFORMATION
  Report Type: 
  Country: None (occurrence: None)
  Receive Date: 20080829
  Receipt Date: 20080822
  Transmission Date: 20090109
  Serious: Yes (Hospitalization)
  Sender: FDA-Public Use
  Company Number: NL-AMGEN-US303920

PATIENT
  Sex: Female

DRUGS (2)
  1. ENBREL [Suspect]
     Indication: PSORIASIS
     Dosage: UNKNOWN
     Dates: start: 20050101
  2. ENBREL [Suspect]
     Dosage: UNKNOWN

REACTIONS (3)
  - AMYOTROPHIC LATERAL SCLEROSIS [None]
  - BURSITIS [None]
  - HYSTERECTOMY [None]
